FAERS Safety Report 8292386-5 (Version None)
Quarter: 2012Q2

REPORT INFORMATION
  Report Type: 
  Country: None (occurrence: None)
  Receive Date: 20120417
  Receipt Date: 20120413
  Transmission Date: 20120825
  Serious: Yes (Other)
  Sender: FDA-Public Use
  Company Number: US-PFIZER INC-2012092826

PATIENT
  Sex: Male
  Weight: 81.633 kg

DRUGS (10)
  1. ACETYLSALICYLIC ACID [Concomitant]
     Dosage: UNK, DAILY
  2. LYRICA [Suspect]
     Indication: DIABETIC NEUROPATHY
     Dosage: 50 MG, DAILY
     Dates: start: 20110301, end: 20111201
  3. LANTUS [Concomitant]
     Dosage: 20 IU, 1X/DAY
  4. HUMALOG [Concomitant]
     Dosage: 26-30 UNITS 6X/DAY
  5. CARVEDILOL [Concomitant]
     Dosage: 6.25 MG, 2X/DAY
  6. SIMVASTATIN [Concomitant]
     Dosage: 15 MG, 1X/DAY
  7. QUINAPRIL HCL AND HYDROCHLOROTHIAZIDE [Concomitant]
     Dosage: 20/12.5, DAILY
  8. FISH OIL [Concomitant]
     Dosage: 2000 MG, 1X/DAY
  9. KOMBIGLYZE XR [Concomitant]
     Dosage: DAILY
  10. GLUCOSAMINE [Concomitant]
     Dosage: 1500 MG, 1X/DAY

REACTIONS (6)
  - WEIGHT INCREASED [None]
  - BLOOD GLUCOSE INCREASED [None]
  - HYPERPHAGIA [None]
  - HUNGER [None]
  - PAIN [None]
  - INSOMNIA [None]
